FAERS Safety Report 7320461-8 (Version None)
Quarter: 2011Q1

REPORT INFORMATION
  Report Type: 
  Country: None (occurrence: None)
  Receive Date: 20110228
  Receipt Date: 20110218
  Transmission Date: 20110831
  Serious: Yes (Life-Threatening)
  Sender: FDA-Public Use
  Company Number: B0701301A

PATIENT
  Sex: Male
  Weight: 65 kg

DRUGS (17)
  1. SOLU-CORTEF [Concomitant]
     Indication: STEM CELL TRANSPLANT
     Dosage: 100MG PER DAY
     Route: 042
     Dates: start: 20101126, end: 20101126
  2. GABAPEN [Concomitant]
     Dosage: 600MG PER DAY
     Route: 048
     Dates: start: 20101004, end: 20101221
  3. BIOFERMIN R [Concomitant]
     Dosage: 3G PER DAY
     Route: 048
     Dates: start: 20100615
  4. DIFLUCAN [Concomitant]
     Dosage: 200MG PER DAY
     Route: 048
     Dates: start: 20101123, end: 20101221
  5. NEUTROGIN [Concomitant]
     Dates: start: 20101201, end: 20101206
  6. IRRIBOW [Concomitant]
     Dosage: 5MCG PER DAY
     Route: 048
     Dates: start: 20100916
  7. CRAVIT [Concomitant]
     Dosage: 500MG PER DAY
     Route: 048
     Dates: start: 20101123, end: 20101209
  8. VENOGLOBULIN [Concomitant]
     Dosage: 5G PER DAY
     Route: 042
     Dates: start: 20101209, end: 20101209
  9. GASTER D [Concomitant]
     Dosage: 40MG PER DAY
     Route: 048
     Dates: start: 20100413
  10. PRIMPERAN TAB [Concomitant]
     Dosage: 10MG PER DAY
     Dates: start: 20101125, end: 20101127
  11. TARGOCID [Concomitant]
     Route: 042
     Dates: start: 20101214, end: 20101216
  12. NU-LOTAN [Concomitant]
     Dosage: 50MG PER DAY
     Route: 048
     Dates: start: 20100907
  13. ZOMETA [Concomitant]
     Dosage: 4MG PER DAY
     Route: 042
     Dates: start: 20101210, end: 20101210
  14. DORIPENEM [Concomitant]
     Dosage: 1.5G PER DAY
     Route: 042
     Dates: start: 20101209, end: 20101217
  15. FUROSEMIDE [Concomitant]
     Dosage: 20MG PER DAY
     Route: 042
     Dates: start: 20101123, end: 20101206
  16. ALKERAN [Suspect]
     Indication: STEM CELL TRANSPLANT
     Dosage: 175MG PER DAY
     Route: 042
     Dates: start: 20101123, end: 20101124
  17. VICCLOX [Concomitant]
     Dosage: 1G PER DAY
     Route: 048
     Dates: start: 20101119, end: 20101221

REACTIONS (1)
  - SEPSIS [None]
